FAERS Safety Report 4569332-0 (Version None)
Quarter: 2005Q1

REPORT INFORMATION
  Report Type: 
  Country: None (occurrence: None)
  Receive Date: 20050203
  Receipt Date: 20050127
  Transmission Date: 20050727
  Serious: Yes (Hospitalization)
  Sender: FDA-Public Use
  Company Number: US-GLAXOSMITHKLINE-A0542637A

PATIENT
  Sex: Female

DRUGS (9)
  1. WELLBUTRIN [Suspect]
     Indication: DEPRESSION
     Route: 065
  2. AMITRIPTYLINE [Suspect]
     Route: 065
  3. FLUVOXAMINE [Suspect]
     Route: 065
  4. UNKNOWN MEDICATION [Suspect]
     Route: 065
  5. PHENAZOPYRIDINE [Suspect]
  6. PYRIDIUM [Suspect]
  7. UNKNOWN MEDICATION [Suspect]
     Route: 065
  8. ZYPREXA [Suspect]
     Route: 065
  9. ALCOHOL [Suspect]

REACTIONS (1)
  - SUICIDE ATTEMPT [None]
